FAERS Safety Report 16363279 (Version 1)
Quarter: 2019Q3

REPORT INFORMATION
  Report Type: Spontaneous
  Country: US (occurrence: US)
  Receive Date: 20190527
  Receipt Date: 20190527
  Transmission Date: 20191004
  Serious: Yes (Disabling)
  Sender: FDA-Public Use
  Company Number: None

PATIENT
  Age: 27 Year
  Sex: Male
  Weight: 69.75 kg

DRUGS (1)
  1. MOXIFLOXACIN HCL 400MG TABS AUROBINDO PHARMA [Suspect]
     Active Substance: MOXIFLOXACIN
     Indication: MYCOPLASMA GENITALIUM INFECTION
     Dosage: ?          QUANTITY:1 TABLET(S);?
     Route: 048
     Dates: start: 20190521, end: 20190526

REACTIONS (4)
  - Dizziness [None]
  - Insomnia [None]
  - Tendonitis [None]
  - Anxiety [None]

NARRATIVE: CASE EVENT DATE: 20190525
